FAERS Safety Report 20246383 (Version 2)
Quarter: 2022Q1

REPORT INFORMATION
  Report Type: Report from Study
  Country: FR (occurrence: FR)
  Receive Date: 20211229
  Receipt Date: 20220103
  Transmission Date: 20220423
  Serious: Yes (Other)
  Sender: FDA-Public Use
  Company Number: FR-TAKEDA-2021TUS018860

PATIENT
  Age: 46 Year
  Sex: Female
  Weight: 57 kg

DRUGS (14)
  1. LANADELUMAB [Suspect]
     Active Substance: LANADELUMAB
     Indication: Hereditary angioedema
     Dosage: 300 MILLIGRAM, Q2WEEKS
     Route: 058
     Dates: start: 202005
  2. LANADELUMAB [Suspect]
     Active Substance: LANADELUMAB
     Dosage: 300 UNK
     Route: 042
     Dates: start: 20210116
  3. FUROSEMIDE [Concomitant]
     Active Substance: FUROSEMIDE
     Dosage: 500 MILLIGRAM, QD
     Route: 048
  4. TACROLIMUS [Concomitant]
     Active Substance: TACROLIMUS
     Dosage: 2 MILLIGRAM, QD
     Route: 048
  5. PROPRANOLOL [Concomitant]
     Active Substance: PROPRANOLOL HYDROCHLORIDE
     Dosage: 80 MILLIGRAM, QD
     Route: 048
  6. URSODIOL [Concomitant]
     Active Substance: URSODIOL
     Dosage: 250 MILLIGRAM, QID
     Route: 048
  7. CHLORMADINONE ACETATE [Concomitant]
     Active Substance: CHLORMADINONE ACETATE
     Dosage: 10 MILLIGRAM, QD
     Route: 048
  8. METHYLPREDNISOLONE SODIUM SUCCINATE [Concomitant]
     Active Substance: METHYLPREDNISOLONE SODIUM SUCCINATE
     Dosage: 5 MILLIGRAM, BID
     Route: 048
  9. BISOPROLOL [Concomitant]
     Active Substance: BISOPROLOL
     Dosage: 1.25 MILLIGRAM
     Route: 065
  10. WARFARIN SODIUM [Concomitant]
     Active Substance: WARFARIN SODIUM
     Dosage: 2 MILLIGRAM
     Route: 065
  11. CINACALCET HYDROCHLORIDE [Concomitant]
     Active Substance: CINACALCET HYDROCHLORIDE
     Dosage: 30 MILLIGRAM
     Route: 065
  12. ATORVASTATIN [Concomitant]
     Active Substance: ATORVASTATIN
     Dosage: 10 MILLIGRAM
     Route: 065
  13. Solupred [Concomitant]
     Dosage: 5 MILLIGRAM
     Route: 065
  14. Aerius [Concomitant]
     Route: 065

REACTIONS (3)
  - Retinal vein occlusion [Unknown]
  - Injection site pruritus [Recovered/Resolved]
  - Injection site erythema [Recovered/Resolved]

NARRATIVE: CASE EVENT DATE: 20210116
